FAERS Safety Report 5052835-2 (Version None)
Quarter: 2006Q3

REPORT INFORMATION
  Report Type: 
  Country: None (occurrence: None)
  Receive Date: 20060707
  Receipt Date: 20060623
  Transmission Date: 20061208
  Serious: Yes (Hospitalization)
  Sender: FDA-Public Use
  Company Number: HQWYE373426JUN06

PATIENT
  Age: 61 Year
  Sex: Female

DRUGS (2)
  1. NEUMEGA [Suspect]
     Indication: PLATELET COUNT DECREASED
     Dates: start: 20060608
  2. TAXOL [Concomitant]

REACTIONS (2)
  - CEREBROVASCULAR ACCIDENT [None]
  - CEREBROVASCULAR DISORDER [None]
